FAERS Safety Report 5288892-8 (Version None)
Quarter: 2007Q1

REPORT INFORMATION
  Report Type: 
  Country: None (occurrence: None)
  Receive Date: 20070118
  Receipt Date: 20060929
  Transmission Date: 20070707
  Serious: Yes (Other)
  Sender: FDA-Public Use
  Company Number: HQWYE440202OCT06

PATIENT
  Age: 41 Year
  Sex: Female
  Weight: 73.55 kg

DRUGS (2)
  1. ADVIL PM [Suspect]
     Indication: BACK PAIN
     Dosage: 1 CAPLET AT BEDTIME, ORAL
     Route: 048
     Dates: start: 20060901, end: 20060901
  2. ADVIL PM [Suspect]
     Indication: PAIN IN EXTREMITY
     Dosage: 1 CAPLET AT BEDTIME, ORAL
     Route: 048
     Dates: start: 20060901, end: 20060901

REACTIONS (1)
  - DRUG EFFECT DECREASED [None]
